FAERS Safety Report 18797257 (Version 4)
Quarter: 2021Q1

REPORT INFORMATION
  Report Type: Report from Study
  Country: None (occurrence: DE)
  Receive Date: 20210127
  Receipt Date: 20210207
  Transmission Date: 20210419
  Serious: Yes (Hospitalization, Other)
  Sender: FDA-Public Use
  Company Number: DE-ABBVIE-21K-062-3742895-00

PATIENT
  Age: 13 Year
  Sex: Female
  Weight: 29.5 kg

DRUGS (4)
  1. PREDNISON [Concomitant]
     Active Substance: PREDNISONE
     Indication: IMMUNOSUPPRESSION
  2. MTX [Concomitant]
     Active Substance: METHOTREXATE SODIUM
     Indication: IMMUNOSUPPRESSION
     Dates: start: 20190717, end: 20200220
  3. HUMIRA [Suspect]
     Active Substance: ADALIMUMAB
     Indication: JUVENILE IDIOPATHIC ARTHRITIS
     Route: 058
     Dates: start: 20120821, end: 202009
  4. HUMIRA [Suspect]
     Active Substance: ADALIMUMAB
     Route: 058
     Dates: start: 202009, end: 20201014

REACTIONS (20)
  - Aphthous ulcer [Unknown]
  - Gastric mucosal lesion [Unknown]
  - Gastrointestinal mucosa hyperaemia [Unknown]
  - Gastritis [Unknown]
  - Terminal ileitis [Unknown]
  - Gastrointestinal disorder [Unknown]
  - Pyrexia [Unknown]
  - Thrombosis [Unknown]
  - Crohn^s disease [Recovering/Resolving]
  - Diapedesis [Unknown]
  - Depressed mood [Not Recovered/Not Resolved]
  - Neutrophil count increased [Unknown]
  - Gastrointestinal necrosis [Unknown]
  - Gastrointestinal oedema [Unknown]
  - Colitis [Unknown]
  - Gastric mucosa erythema [Unknown]
  - Cognitive disorder [Not Recovered/Not Resolved]
  - Crohn^s disease [Unknown]
  - Gastrointestinal mucosal disorder [Unknown]
  - Juvenile idiopathic arthritis [Unknown]

NARRATIVE: CASE EVENT DATE: 202002
